FAERS Safety Report 4937751-6 (Version None)
Quarter: 2006Q1

REPORT INFORMATION
  Report Type: 
  Country: None (occurrence: None)
  Receive Date: 20060302
  Receipt Date: 20060222
  Transmission Date: 20060701
  Serious: Yes (Hospitalization)
  Sender: FDA-Public Use
  Company Number: 2006025312

PATIENT
  Age: 61 Year
  Sex: Male

DRUGS (7)
  1. LIPITOR [Suspect]
     Indication: HYPERLIPIDAEMIA
     Dosage: 10 MG (10 MG, 1 IN 1 D), ORAL
     Route: 048
     Dates: start: 20031107
  2. PERINDOPRIL [Concomitant]
  3. ISOSORBIDE MONONITRATE [Concomitant]
  4. PREDUCTAL (TRIMETAZIDINE) [Concomitant]
  5. AMICLOTON (AMILORIDE  HYDROCHLORIDE, CHLORTALIDONE) [Concomitant]
  6. INDOBUFEN [Concomitant]
  7. PULMICORT [Concomitant]

REACTIONS (1)
  - INGUINAL HERNIA [None]
